FAERS Safety Report 24575763 (Version 2)
Quarter: 2024Q4

REPORT INFORMATION
  Report Type: Report from Study
  Country: CA (occurrence: CA)
  Receive Date: 20241104
  Receipt Date: 20241109
  Transmission Date: 20250115
  Serious: Yes (Hospitalization, Other)
  Sender: ABBVIE
  Company Number: CA-ABBVIE-5985844

PATIENT
  Age: 49 Year
  Sex: Male

DRUGS (2)
  1. SKYRIZI [Suspect]
     Active Substance: RISANKIZUMAB-RZAA
     Indication: Crohn^s disease
     Route: 042
     Dates: start: 2024
  2. SKYRIZI [Suspect]
     Active Substance: RISANKIZUMAB-RZAA
     Indication: Crohn^s disease
     Dosage: FREQUENCY TEXT: WEEK 0, WEEK 4, AND WEEK 8
     Route: 042
     Dates: start: 20240719, end: 20240911

REACTIONS (8)
  - Ileal stenosis [Unknown]
  - Gastrointestinal disorder [Unknown]
  - Constipation [Unknown]
  - Flatulence [Unknown]
  - Gastrointestinal erosion [Unknown]
  - Crohn^s disease [Recovering/Resolving]
  - Ileal stenosis [Unknown]
  - Intestinal obstruction [Not Recovered/Not Resolved]

NARRATIVE: CASE EVENT DATE: 20240101
